FAERS Safety Report 7627216-5 (Version None)
Quarter: 2011Q3

REPORT INFORMATION
  Report Type: 
  Country: None (occurrence: None)
  Receive Date: 20110721
  Receipt Date: 20110719
  Transmission Date: 20111222
  Serious: No
  Sender: FDA-Public Use
  Company Number: US-B.I. PHARMACEUTICALS,INC./RIDGEFIELD-2011-BP-18088BP

PATIENT
  Sex: Male

DRUGS (2)
  1. SPIRIVA [Suspect]
  2. ALBUTEROL SULFATE AUTOHALER [Concomitant]
     Dosage: INHALER
     Route: 055

REACTIONS (1)
  - DRUG INEFFECTIVE [None]
